FAERS Safety Report 6251633-1 (Version None)
Quarter: 2009Q2

REPORT INFORMATION
  Report Type: 
  Country: None (occurrence: None)
  Receive Date: 20090630
  Receipt Date: 20090619
  Transmission Date: 20091009
  Serious: Yes (Hospitalization)
  Sender: FDA-Public Use
  Company Number: US-AVENTIS-200915403US

PATIENT
  Age: 43 Year
  Sex: Male

DRUGS (5)
  1. NASACORT AQ [Suspect]
     Indication: SEASONAL ALLERGY
     Dosage: DOSE: 2 SQUIRTS IN EACH NOSTRIL
     Dates: start: 20090501, end: 20090613
  2. NASACORT AQ [Suspect]
     Dosage: DOSE: 1 SQUIRT IN EACH NOSTRIL
     Dates: start: 20090614, end: 20090615
  3. CLARITIN [Suspect]
     Dosage: DOSE: UNK
  4. EXCEDRIN (MIGRAINE) [Concomitant]
     Dosage: DOSE: OCCASIONAL
  5. VITAMINS [Concomitant]
     Dosage: DOSE: UNK

REACTIONS (18)
  - ABDOMINAL DISCOMFORT [None]
  - ALOPECIA [None]
  - ANOREXIA [None]
  - ANXIETY [None]
  - CHEST PAIN [None]
  - DIARRHOEA [None]
  - DISTURBANCE IN ATTENTION [None]
  - DIZZINESS [None]
  - DYSPEPSIA [None]
  - DYSPNOEA [None]
  - FEELING ABNORMAL [None]
  - HOT FLUSH [None]
  - HYPERHIDROSIS [None]
  - MICTURITION URGENCY [None]
  - NAUSEA [None]
  - PARAESTHESIA [None]
  - VISION BLURRED [None]
  - WEIGHT DECREASED [None]
